FAERS Safety Report 21721722 (Version 15)
Quarter: 2023Q2

REPORT INFORMATION
  Report Type: Report from Study
  Country: NO (occurrence: None)
  Receive Date: 20221213
  Receipt Date: 20230627
  Transmission Date: 20230721
  Serious: Yes (Hospitalization)
  Sender: FDA-Public Use
  Company Number: NO-Eisai Medical Research-EC-2022-129698

PATIENT
  Age: 74 Year
  Sex: Male
  Weight: 78 kg

DRUGS (11)
  1. LENVATINIB [Suspect]
     Active Substance: LENVATINIB
     Indication: Clear cell renal cell carcinoma
     Route: 048
     Dates: start: 20221121, end: 20221205
  2. LENVATINIB [Suspect]
     Active Substance: LENVATINIB
     Route: 048
     Dates: start: 20221216
  3. QUAVONLIMAB [Suspect]
     Active Substance: QUAVONLIMAB
     Indication: Clear cell renal cell carcinoma
     Dosage: QUAVONLIMAB 25 MG (+) PEMBROLIZUMAB (MK-3475) 400 MG
     Route: 042
     Dates: start: 20221121, end: 20221121
  4. PEMBROLIZUMAB [Suspect]
     Active Substance: PEMBROLIZUMAB
     Dosage: QUAVONLIMAB 25 MG (+) PEMBROLIZUMAB (MK-3475) 400 MG
     Route: 042
     Dates: start: 20230105
  5. ATORVASTATIN [Concomitant]
     Active Substance: ATORVASTATIN
     Dates: start: 202201
  6. SYMBICORT [Concomitant]
     Active Substance: BUDESONIDE\FORMOTEROL FUMARATE DIHYDRATE
     Dates: start: 202201
  7. ESOMEPRAZOLE [Concomitant]
     Active Substance: ESOMEPRAZOLE
     Dates: start: 202201
  8. FLUDROCORTISONE [Concomitant]
     Active Substance: FLUDROCORTISONE
     Dates: start: 202201
  9. CORTISONE [Concomitant]
     Active Substance: CORTISONE
     Dates: start: 202201
  10. ALBUTEROL SULFATE [Concomitant]
     Active Substance: ALBUTEROL SULFATE
     Dates: start: 202201
  11. LORATADINE [Concomitant]
     Active Substance: LORATADINE
     Dates: start: 202201

REACTIONS (1)
  - Dyspnoea [Recovering/Resolving]

NARRATIVE: CASE EVENT DATE: 20221125
